FAERS Safety Report 4427051-5 (Version None)
Quarter: 2004Q3

REPORT INFORMATION
  Report Type: 
  Country: None (occurrence: None)
  Receive Date: 20040811
  Receipt Date: 20040729
  Transmission Date: 20050211
  Serious: Yes (Death, Other)
  Sender: FDA-Public Use
  Company Number: 2004052118

PATIENT
  Age: 20 Year
  Sex: Male

DRUGS (1)
  1. NEURONTIN [Suspect]
     Indication: DEPRESSION

REACTIONS (4)
  - ANXIETY [None]
  - COMPLETED SUICIDE [None]
  - MEDICATION ERROR [None]
  - PAIN [None]
